FAERS Safety Report 4392769-X (Version None)
Quarter: 2004Q3

REPORT INFORMATION
  Report Type: 
  Country: None (occurrence: None)
  Receive Date: 20040706
  Receipt Date: 20040623
  Transmission Date: 20050211
  Serious: Yes (Hospitalization)
  Sender: FDA-Public Use
  Company Number: 2004UW13018

PATIENT
  Age: 56 Year
  Sex: Female

DRUGS (9)
  1. CRESTOR [Suspect]
     Dosage: 10 MG QD PO
     Route: 048
     Dates: start: 20040401, end: 20040501
  2. TOPROL-XL [Concomitant]
  3. CELEXA [Concomitant]
  4. PROTONIX [Concomitant]
  5. LISINOPRIL [Concomitant]
  6. HYDROCHLOROTHIAZIDE [Concomitant]
  7. BEXTRA [Concomitant]
  8. GLYBURIDE [Concomitant]
  9. GLUCOPHAGE [Concomitant]

REACTIONS (3)
  - BLOOD CREATININE INCREASED [None]
  - BLOOD POTASSIUM INCREASED [None]
  - OLIGURIA [None]
